FAERS Safety Report 4612593-X (Version None)
Quarter: 2005Q1

REPORT INFORMATION
  Report Type: 
  Country: None (occurrence: None)
  Receive Date: 20050318
  Receipt Date: 20050315
  Transmission Date: 20050727
  Serious: Yes (Hospitalization)
  Sender: FDA-Public Use
  Company Number: 200510659EU

PATIENT
  Age: 18 Year
  Sex: Male

DRUGS (3)
  1. LANTUS [Suspect]
     Indication: DIABETES MELLITUS
     Route: 058
     Dates: start: 20030401
  2. NOVORAPID [Suspect]
     Indication: DIABETES MELLITUS
     Route: 058
     Dates: start: 20030401
  3. LEVAXIN [Concomitant]

REACTIONS (2)
  - CALCIUM METABOLISM DISORDER [None]
  - CATARACT [None]
